FAERS Safety Report 5977747-9 (Version None)
Quarter: 2008Q4

REPORT INFORMATION
  Report Type: 
  Country: None (occurrence: None)
  Receive Date: 20081202
  Receipt Date: 20081202
  Transmission Date: 20090506
  Serious: Yes (Other)
  Sender: FDA-Public Use
  Company Number: None

PATIENT
  Sex: Female
  Weight: 63.5036 kg

DRUGS (1)
  1. LISINOPRIL [Suspect]
     Indication: HYPERTENSION
     Dosage: 30 TABLETS ONCE DAILY PO
     Route: 048
     Dates: start: 20080601, end: 20081123

REACTIONS (2)
  - COUGH [None]
  - EMOTIONAL DISTRESS [None]
